FAERS Safety Report 23559141 (Version 1)
Quarter: 2024Q1

REPORT INFORMATION
  Report Type: Spontaneous
  Country: US (occurrence: None)
  Receive Date: 20240223
  Receipt Date: 20240223
  Transmission Date: 20240410
  Serious: No
  Sender: FDA-Public Use
  Company Number: None

PATIENT
  Age: 61 Year
  Sex: Male

DRUGS (1)
  1. LENALIDOMIDE [Suspect]
     Active Substance: LENALIDOMIDE
     Indication: Plasma cell myeloma
     Dosage: 25MG QD ORAL?
     Route: 048
     Dates: start: 20231109

REACTIONS (5)
  - Rash maculo-papular [None]
  - Rash pruritic [None]
  - Liver function test increased [None]
  - Eosinophil count increased [None]
  - Therapy interrupted [None]

NARRATIVE: CASE EVENT DATE: 20240201
